FAERS Safety Report 8522447-4 (Version None)
Quarter: 2012Q3

REPORT INFORMATION
  Report Type: 
  Country: None (occurrence: None)
  Receive Date: 20120719
  Receipt Date: 20120717
  Transmission Date: 20120928
  Serious: No
  Sender: FDA-Public Use
  Company Number: DK-009507513-1207DNK005733

PATIENT

DRUGS (2)
  1. LAMOTRIGINE [Concomitant]
     Indication: BIPOLAR DISORDER
     Dates: start: 20100518
  2. SYCREST [Suspect]
     Indication: BIPOLAR I DISORDER
     Dosage: STYRKE: 10 MG
     Route: 060
     Dates: start: 20120403

REACTIONS (3)
  - THIRST [None]
  - POLYDIPSIA [None]
  - PRURITUS [None]
